FAERS Safety Report 7728333-1 (Version None)
Quarter: 2011Q3

REPORT INFORMATION
  Report Type: 
  Country: None (occurrence: None)
  Receive Date: 20110905
  Receipt Date: 20110831
  Transmission Date: 20111222
  Serious: Yes (Other)
  Sender: FDA-Public Use
  Company Number: PHHY2011JP77878

PATIENT
  Sex: Female

DRUGS (2)
  1. ZOMETA [Suspect]
     Indication: METASTASES TO BONE
     Dosage: 4 MG PER ADMINISTRATION
     Dates: start: 20110106, end: 20110201
  2. XELODA [Suspect]
     Dosage: UNK UKN, UNK
     Route: 048

REACTIONS (1)
  - PULMONARY THROMBOSIS [None]
